FAERS Safety Report 9787766 (Version 2)
Quarter: 2014Q1

REPORT INFORMATION
  Report Type: Spontaneous
  Country: US (occurrence: US)
  Receive Date: 20131230
  Receipt Date: 20140121
  Transmission Date: 20141002
  Serious: Yes (Hospitalization, Other)
  Sender: FDA-Public Use
  Company Number: US-JNJFOC-20131211934

PATIENT
  Sex: Male
  Weight: 92 kg

DRUGS (2)
  1. STELARA [Suspect]
     Indication: PSORIASIS
     Route: 058
     Dates: start: 20120611
  2. STELARA [Suspect]
     Indication: PSORIASIS
     Route: 058

REACTIONS (4)
  - Blood pressure increased [Recovering/Resolving]
  - Carotid artery stenosis [Unknown]
  - Cerebral infarction [Recovering/Resolving]
  - Urinary retention [Unknown]
